FAERS Safety Report 21412873 (Version 1)
Quarter: 2022Q4

REPORT INFORMATION
  Report Type: Spontaneous
  Country: US (occurrence: US)
  Receive Date: 20221005
  Receipt Date: 20221005
  Transmission Date: 20230113
  Serious: Yes (Life-Threatening, Hospitalization, Other)
  Sender: FDA-Public Use
  Company Number: US-MLMSERVICE-20220922-3807545-2

PATIENT
  Age: 74 Year
  Sex: Male

DRUGS (3)
  1. DEXAMETHASONE [Suspect]
     Active Substance: DEXAMETHASONE
     Indication: COVID-19
     Route: 065
  2. LORAZEPAM [Suspect]
     Active Substance: LORAZEPAM
     Indication: Catatonia
     Route: 065
  3. REMDESIVIR [Concomitant]
     Active Substance: REMDESIVIR
     Indication: COVID-19

REACTIONS (8)
  - Catatonia [Recovered/Resolved]
  - Paranoia [Recovered/Resolved]
  - Poor quality sleep [Recovered/Resolved]
  - Lethargy [Recovered/Resolved]
  - Decreased eye contact [Recovered/Resolved]
  - Suicidal ideation [Recovered/Resolved]
  - Hallucination, auditory [Recovered/Resolved]
  - Therapy partial responder [Unknown]
